FAERS Safety Report 24731348 (Version 1)
Quarter: 2024Q4

REPORT INFORMATION
  Report Type: Report from Study
  Country: KR (occurrence: KR)
  Receive Date: 20241213
  Receipt Date: 20241213
  Transmission Date: 20250114
  Serious: Yes (Other)
  Sender: ALEXION PHARMACEUTICALS
  Company Number: KR-AstraZeneca-CH-00762788A

PATIENT
  Age: 49 Year

DRUGS (4)
  1. TAGRISSO [Suspect]
     Active Substance: OSIMERTINIB
     Indication: Lung carcinoma cell type unspecified stage IV
  2. TAGRISSO [Suspect]
     Active Substance: OSIMERTINIB
     Route: 048
  3. TAGRISSO [Suspect]
     Active Substance: OSIMERTINIB
  4. TAGRISSO [Suspect]
     Active Substance: OSIMERTINIB
     Route: 048

REACTIONS (7)
  - Metastases to bone [Not Recovered/Not Resolved]
  - Syncope [Recovered/Resolved]
  - Blood pressure abnormal [Not Recovered/Not Resolved]
  - Orthostatic hypotension [Not Recovered/Not Resolved]
  - Limb injury [Recovered/Resolved]
  - Erythema [Recovering/Resolving]
  - Acne [Recovering/Resolving]
